FAERS Safety Report 4352041-0 (Version None)
Quarter: 2004Q2

REPORT INFORMATION
  Report Type: 
  Country: None (occurrence: None)
  Receive Date: 20040503
  Receipt Date: 20010416
  Transmission Date: 20050107
  Serious: Yes (Life-Threatening)
  Sender: FDA-Public Use
  Company Number: JP-MERCK-01042376

PATIENT
  Age: 3 Day
  Sex: Male
  Weight: 2 kg

DRUGS (12)
  1. [COMPOSITION UNSPECIFIED] [Concomitant]
     Route: 065
     Dates: start: 20010328, end: 20010419
  2. ADENOSINE TRIPHOSPHATE DISODIUM [Concomitant]
     Route: 065
     Dates: start: 20010320, end: 20010320
  3. DOBUTAMINE HYDROCHLORIDE [Concomitant]
     Route: 065
     Dates: start: 20010318, end: 20010324
  4. DOPAMINE [Concomitant]
     Route: 065
     Dates: start: 20010318, end: 20010328
  5. VASOTEC [Suspect]
     Indication: GENERAL SYMPTOM
     Route: 048
     Dates: start: 20010405, end: 20010407
  6. FUROSEMIDE [Concomitant]
     Route: 065
     Dates: start: 20010318, end: 20010402
  7. FUROSEMIDE [Concomitant]
     Route: 065
     Dates: start: 20010407, end: 20010410
  8. GENERAL ANESTHESIA (UNSPECIFIED) [Concomitant]
     Route: 065
     Dates: start: 20010326, end: 20010326
  9. INDOCIN I.V. [Suspect]
     Indication: PATENT DUCTUS ARTERIOSUS
     Route: 042
     Dates: start: 20010320, end: 20010320
  10. MIDAZOLAM [Concomitant]
     Route: 065
     Dates: start: 20010327, end: 20010328
  11. PLASMA PROTEIN FRACTION [Concomitant]
     Route: 065
     Dates: start: 20010318, end: 20010401
  12. PROCAINAMIDE HYDROCHLORIDE [Concomitant]
     Route: 065
     Dates: start: 20010324, end: 20010326

REACTIONS (4)
  - HAEMATURIA [None]
  - HYDRONEPHROSIS [None]
  - NEONATAL DISORDER [None]
  - OLIGURIA [None]
